FAERS Safety Report 24655713 (Version 2)
Quarter: 2024Q4

REPORT INFORMATION
  Report Type: Report from Study
  Country: KR (occurrence: KR)
  Receive Date: 20241123
  Receipt Date: 20241207
  Transmission Date: 20250115
  Serious: Yes (Death)
  Sender: ABBVIE
  Company Number: KR-PFIZER INC-PV202400150369

PATIENT
  Age: 78 Year
  Sex: Male

DRUGS (8)
  1. AVIBACTAM SODIUM\CEFTAZIDIME [Suspect]
     Active Substance: AVIBACTAM SODIUM\CEFTAZIDIME
     Indication: Pneumonia
     Dosage: TIME INTERVAL: 0.33333333 DAYS: 1 VIAL, 3X/DAY
     Route: 042
     Dates: start: 20241028
  2. STAVIC [Concomitant]
     Indication: Prophylaxis against diarrhoea
     Dosage: INFUSION PUMP
     Dates: start: 20241030, end: 20241107
  3. K CONTIN [Concomitant]
     Indication: Hypokalaemia
     Dosage: INFUSION PUMP
     Dates: start: 20240930, end: 20241101
  4. NEXIUM [Concomitant]
     Active Substance: ESOMEPRAZOLE MAGNESIUM
     Indication: Peptic ulcer
     Dosage: INFUSION PUMP
     Dates: start: 20240919
  5. LOPERAMIDE HYDROCHLORIDE [Concomitant]
     Active Substance: LOPERAMIDE HYDROCHLORIDE
     Indication: Prophylaxis against diarrhoea
     Dosage: INFUSION PUMP
     Dates: start: 20241030, end: 20241031
  6. Q PHRINE [Concomitant]
     Indication: Hypokalaemia
     Dosage: INFUSION PUMP
     Dates: start: 20240919
  7. VANCOMYCIN [Concomitant]
     Active Substance: VANCOMYCIN
     Indication: Clostridium difficile infection
     Dosage: INFUSION PUMP
     Dates: start: 20240921
  8. POTASSIUM CHLORIDE [Concomitant]
     Active Substance: POTASSIUM CHLORIDE
     Indication: Hypokalaemia
     Dosage: INFUSION PUMP
     Dates: start: 20240919

REACTIONS (1)
  - Septic shock [Fatal]

NARRATIVE: CASE EVENT DATE: 20241108
